FAERS Safety Report 21878894 (Version 1)
Quarter: 2023Q1

REPORT INFORMATION
  Report Type: Report from Study
  Country: US (occurrence: US)
  Receive Date: 20230118
  Receipt Date: 20230118
  Transmission Date: 20230417
  Serious: No
  Sender: FDA-Public Use
  Company Number: US-ABBVIE-4243891

PATIENT
  Age: 12 Year
  Sex: Male

DRUGS (3)
  1. HUMIRA [Suspect]
     Active Substance: ADALIMUMAB
     Indication: Crohn^s disease
     Route: 058
  2. MIRALAX [Concomitant]
     Active Substance: POLYETHYLENE GLYCOL 3350
     Indication: Product used for unknown indication
     Route: 065
  3. COLON CLEANSE [Concomitant]
     Indication: Product used for unknown indication
     Route: 065

REACTIONS (5)
  - Vomiting [Not Recovered/Not Resolved]
  - Lactose intolerance [Unknown]
  - Anxiety [Unknown]
  - Nervous system disorder [Unknown]
  - Adverse food reaction [Unknown]

NARRATIVE: CASE EVENT DATE: 20221213
